FAERS Safety Report 6742786-7 (Version None)
Quarter: 2010Q2

REPORT INFORMATION
  Report Type: 
  Country: None (occurrence: None)
  Receive Date: 20100525
  Receipt Date: 20100510
  Transmission Date: 20101027
  Serious: Yes (Other)
  Sender: FDA-Public Use
  Company Number: AUR-APL-2010-01284

PATIENT
  Age: 39 Year
  Sex: Female

DRUGS (6)
  1. FLUOXETINE [Suspect]
     Indication: TREMOR
     Dosage: 20MG, DAILY
  2. TOPIRAMATE [Suspect]
     Dosage: 50MG, BID
  3. AMANTADINE HCL [Suspect]
     Indication: FATIGUE
     Dosage: 2100MG - BID
  4. BUPROPION HCL [Concomitant]
  5. CEPAXONE [Concomitant]
  6. CLONAZEPAM [Concomitant]

REACTIONS (3)
  - CORNEAL OEDEMA [None]
  - DRUG EFFECT DECREASED [None]
  - MALNUTRITION [None]
